FAERS Safety Report 6722541-4 (Version None)
Quarter: 2010Q2

REPORT INFORMATION
  Report Type: 
  Country: None (occurrence: None)
  Receive Date: 20100506
  Receipt Date: 20090925
  Transmission Date: 20101027
  Serious: Yes (Life-Threatening)
  Sender: FDA-Public Use
  Company Number: WAES 0909USA04257

PATIENT
  Age: 40 Year
  Sex: Female

DRUGS (3)
  1. EMEND [Suspect]
     Indication: CHEMOTHERAPY
     Dosage: 115 MG/1X/IV
     Route: 042
     Dates: start: 20090918, end: 20090918
  2. EMEND [Suspect]
     Indication: PROPHYLAXIS
     Dosage: 115 MG/1X/IV
     Route: 042
     Dates: start: 20090918, end: 20090918
  3. CISPLATIN [Concomitant]

REACTIONS (4)
  - BLOOD PRESSURE INCREASED [None]
  - DYSPNOEA [None]
  - FLUSHING [None]
  - HEART RATE INCREASED [None]
